FAERS Safety Report 7008365-1 (Version None)
Quarter: 2010Q3

REPORT INFORMATION
  Report Type: 
  Country: None (occurrence: None)
  Receive Date: 20100922
  Receipt Date: 20100915
  Transmission Date: 20110219
  Serious: Yes (Other)
  Sender: FDA-Public Use
  Company Number: A0882392A

PATIENT
  Sex: Female

DRUGS (3)
  1. LAMICTAL [Suspect]
     Route: 048
  2. TRILEPTAL [Suspect]
     Route: 065
  3. CARBAMAZEPINE [Suspect]
     Route: 065

REACTIONS (1)
  - CONVULSION [None]
